FAERS Safety Report 8407922 (Version 11)
Quarter: 2015Q3

REPORT INFORMATION
  Report Type: Report from Study
  Country: ES (occurrence: ES)
  Receive Date: 20120215
  Receipt Date: 20150807
  Transmission Date: 20151125
  Serious: Yes (Death, Hospitalization)
  Sender: FDA-Public Use
  Company Number: ES-ROCHE-1037165

PATIENT
  Age: 64 Year
  Sex: Male
  Weight: 68 kg

DRUGS (5)
  1. RUPATADINE [Concomitant]
     Active Substance: RUPATADINE
     Route: 065
     Dates: start: 20111020, end: 20120131
  2. PREDNISONE. [Concomitant]
     Active Substance: PREDNISONE
     Route: 065
     Dates: start: 20111020, end: 20120131
  3. OMEPRAZOLE. [Concomitant]
     Active Substance: OMEPRAZOLE
     Route: 065
     Dates: start: 20110922
  4. PREDNICARBATE. [Concomitant]
     Active Substance: PREDNICARBATE
     Route: 065
     Dates: start: 20111020, end: 20111031
  5. VEMURAFENIB [Suspect]
     Active Substance: VEMURAFENIB
     Indication: METASTATIC MALIGNANT MELANOMA
     Route: 048
     Dates: start: 20110922, end: 20120131

REACTIONS (1)
  - Sepsis [Fatal]

NARRATIVE: CASE EVENT DATE: 20120131
